FAERS Safety Report 5663094-1 (Version None)
Quarter: 2008Q1

REPORT INFORMATION
  Report Type: 
  Country: None (occurrence: None)
  Receive Date: 20080313
  Receipt Date: 20080303
  Transmission Date: 20080703
  Serious: Yes (Hospitalization)
  Sender: FDA-Public Use
  Company Number: A0707894A

PATIENT
  Age: 84 Year
  Sex: Female
  Weight: 60 kg

DRUGS (2)
  1. ROSIGLITAZONE [Suspect]
     Dosage: 8MG PER DAY
     Route: 048
     Dates: start: 20070823, end: 20080203
  2. GALANTAMINE HYDROBROMIDE [Concomitant]
     Dosage: 16MG PER DAY
     Route: 048
     Dates: start: 20031120

REACTIONS (3)
  - ANGINA PECTORIS [None]
  - CHEST PAIN [None]
  - FLATULENCE [None]
